FAERS Safety Report 25765078 (Version 1)
Quarter: 2025Q3

REPORT INFORMATION
  Report Type: Spontaneous
  Country: EU (occurrence: EU)
  Receive Date: 20250905
  Receipt Date: 20250905
  Transmission Date: 20251021
  Serious: Yes (Other)
  Sender: Kenvue
  Company Number: EU-Merck Healthcare KGaA-2025041753

PATIENT

DRUGS (3)
  1. LOPERAMIDE HYDROCHLORIDE [Suspect]
     Active Substance: LOPERAMIDE HYDROCHLORIDE
     Indication: Product used for unknown indication
     Route: 065
  2. MAVENCLAD [Suspect]
     Active Substance: CLADRIBINE
     Indication: Multiple sclerosis
     Dosage: 1 DOSAGE FORM, ONCE A DAY, FIRST CYCLE
     Route: 065
     Dates: start: 20250610, end: 20250613
  3. MAVENCLAD [Suspect]
     Active Substance: CLADRIBINE
     Route: 065
     Dates: start: 20250710, end: 20250713

REACTIONS (3)
  - Loss of consciousness [Recovered/Resolved]
  - Headache [Recovered/Resolved]
  - Pyrexia [Recovered/Resolved]
